FAERS Safety Report 21202773 (Version 2)
Quarter: 2022Q3

REPORT INFORMATION
  Report Type: Spontaneous
  Country: US (occurrence: US)
  Receive Date: 20220811
  Receipt Date: 20220817
  Transmission Date: 20221026
  Serious: No
  Sender: FDA-Public Use
  Company Number: US-OTSUKA-2021_036127

PATIENT
  Age: 80 Year
  Sex: Female

DRUGS (4)
  1. ABILIFY [Suspect]
     Active Substance: ARIPIPRAZOLE
     Indication: Depression
     Dosage: UNK
     Route: 065
     Dates: start: 202105, end: 202109
  2. REXULTI [Suspect]
     Active Substance: BREXPIPRAZOLE
     Indication: Depression
     Dosage: UNK
     Route: 048
     Dates: start: 202101, end: 202101
  3. TRINTELLIX [Concomitant]
     Active Substance: VORTIOXETINE HYDROBROMIDE
     Indication: Depression
     Dosage: 10 MG
     Route: 065
  4. TRINTELLIX [Concomitant]
     Active Substance: VORTIOXETINE HYDROBROMIDE
     Dosage: 15 MG
     Route: 065

REACTIONS (3)
  - Feeling abnormal [Recovered/Resolved]
  - Fatigue [Unknown]
  - Economic problem [Unknown]

NARRATIVE: CASE EVENT DATE: 20210501
